FAERS Safety Report 20912078 (Version 1)
Quarter: 2022Q2

REPORT INFORMATION
  Report Type: Spontaneous
  Country: US (occurrence: US)
  Receive Date: 20220603
  Receipt Date: 20220603
  Transmission Date: 20220721
  Serious: Yes (Other)
  Sender: FDA-Public Use
  Company Number: US-SABAL THERAPEUTICS LLC-2022-ATH-000006

PATIENT
  Age: 43 Year
  Sex: Male

DRUGS (2)
  1. OZOBAX [Suspect]
     Active Substance: BACLOFEN
     Indication: Product used for unknown indication
     Dosage: 5 MG, TID
     Route: 048
  2. OZOBAX [Suspect]
     Active Substance: BACLOFEN
     Dosage: 10 MG, TID
     Route: 048

REACTIONS (2)
  - Altered state of consciousness [Recovered/Resolved]
  - Confusional state [Recovered/Resolved]
